FAERS Safety Report 7033845-2 (Version None)
Quarter: 2010Q4

REPORT INFORMATION
  Report Type: 
  Country: None (occurrence: None)
  Receive Date: 20101007
  Receipt Date: 20100930
  Transmission Date: 20110411
  Serious: Yes (Hospitalization)
  Sender: FDA-Public Use
  Company Number: PHHY2010NL65053

PATIENT
  Sex: Female

DRUGS (2)
  1. ZOMETA [Suspect]
     Dosage: 04 MG/5 ML
     Dates: start: 20091002
  2. ZOMETA [Suspect]
     Dosage: 04 MG/5 ML
     Dates: start: 20100331

REACTIONS (4)
  - BRADYCARDIA [None]
  - DYSPNOEA [None]
  - PLEURAL EFFUSION [None]
  - PYREXIA [None]
